FAERS Safety Report 13698019 (Version 1)
Quarter: 2017Q2

REPORT INFORMATION
  Report Type: Spontaneous
  Country: ZA (occurrence: ZA)
  Receive Date: 20170628
  Receipt Date: 20170628
  Transmission Date: 20170830
  Serious: Yes (Death, Other)
  Sender: FDA-Public Use
  Company Number: ZA-MYLANLABS-2017M1039152

PATIENT

DRUGS (6)
  1. WARFARIN SODIUM. [Suspect]
     Active Substance: WARFARIN SODIUM
     Dosage: 5 MG, UNK
     Route: 048
  2. ZARTAN CO [Suspect]
     Active Substance: HYDROCHLOROTHIAZIDE\LOSARTAN POTASSIUM
     Indication: HYPERTENSION
     Dosage: UNK
     Route: 048
  3. SLOW MAG [Suspect]
     Active Substance: MAGNESIUM CHLORIDE
     Indication: MINERAL SUPPLEMENTATION
     Dosage: 535 MG, UNK
     Route: 048
  4. MYLAN PANTOPRAZOLE 40 MG [Suspect]
     Active Substance: PANTOPRAZOLE SODIUM
     Indication: ULCER
     Dosage: 40 MG, UNK
     Route: 048
  5. TRAMACET [Suspect]
     Active Substance: ACETAMINOPHEN\TRAMADOL
     Indication: PAIN
     Dosage: UNK
     Route: 048
  6. FOXAIR [Suspect]
     Active Substance: FLUTICASONE PROPIONATE\SALMETEROL XINAFOATE
     Indication: CHRONIC OBSTRUCTIVE PULMONARY DISEASE
     Dosage: UNK
     Route: 048

REACTIONS (1)
  - Death [Fatal]
